FAERS Safety Report 7159190-2 (Version None)
Quarter: 2010Q4

REPORT INFORMATION
  Report Type: 
  Country: None (occurrence: None)
  Receive Date: 20101214
  Receipt Date: 20101206
  Transmission Date: 20110411
  Serious: Yes (Other)
  Sender: FDA-Public Use
  Company Number: DE-PFIZER INC-2010139973

PATIENT
  Age: 81 Year
  Sex: Male

DRUGS (13)
  1. ZOLOFT [Suspect]
     Dosage: 100 MG, 1X/DAY
     Route: 048
     Dates: start: 20100331, end: 20100601
  2. ZOLOFT [Suspect]
     Dosage: 200 MG, 1X/DAY
     Route: 048
     Dates: start: 20100602, end: 20100615
  3. ZOLOFT [Suspect]
     Dosage: 100 MG, 1X/DAY
     Dates: start: 20100616
  4. ZOLOFT [Suspect]
     Dosage: 50 MG, UNK
     Dates: start: 20100620, end: 20100622
  5. RISPERDAL [Suspect]
     Dosage: UNK
     Route: 048
     Dates: start: 20020101, end: 20100324
  6. RISPERDAL [Suspect]
     Dosage: UNK
     Route: 048
     Dates: start: 20100426, end: 20100511
  7. RISPERDAL [Suspect]
     Dosage: UNK
     Route: 048
     Dates: start: 20100512, end: 20100525
  8. RISPERDAL [Suspect]
     Dosage: UNK
     Route: 048
     Dates: start: 20100526
  9. VALDOXAN [Suspect]
     Dosage: UNK
     Route: 048
     Dates: start: 20100324
  10. ENALAPRIL [Concomitant]
     Dosage: UNK
     Route: 048
     Dates: start: 20060101
  11. DOXAZOSIN [Concomitant]
     Dosage: UNK
     Route: 048
     Dates: start: 20080101
  12. FINASTERIDE [Concomitant]
     Dosage: UNK
     Route: 048
     Dates: start: 20080101
  13. PANTOZOL [Concomitant]
     Dosage: UNK
     Route: 048
     Dates: start: 20100407

REACTIONS (1)
  - PNEUMONIA [None]
